FAERS Safety Report 21484959 (Version 1)
Quarter: 2022Q4

REPORT INFORMATION
  Report Type: Spontaneous
  Country: PR (occurrence: None)
  Receive Date: 20221019
  Receipt Date: 20221019
  Transmission Date: 20230113
  Serious: Yes (unspecified)
  Sender: FDA-Public Use
  Company Number: None

PATIENT
  Age: 61 Year
  Sex: Female

DRUGS (1)
  1. BRUKINSA [Suspect]
     Active Substance: ZANUBRUTINIB
     Indication: Mantle cell lymphoma
     Dosage: FREQUENCY : TWICE A DAY;?
     Route: 048

REACTIONS (7)
  - Myalgia [None]
  - Pain [None]
  - Dyspnoea [None]
  - Chest pain [None]
  - Pyrexia [None]
  - Drug intolerance [None]
  - Renal impairment [None]

NARRATIVE: CASE EVENT DATE: 20221007
